FAERS Safety Report 6913081-8 (Version None)
Quarter: 2010Q3

REPORT INFORMATION
  Report Type: 
  Country: None (occurrence: None)
  Receive Date: 20100806
  Receipt Date: 20090721
  Transmission Date: 20110219
  Serious: Yes (Other)
  Sender: FDA-Public Use
  Company Number: US-PFIZER INC-2009215853

PATIENT
  Sex: Female
  Weight: 82 kg

DRUGS (19)
  1. VFEND [Suspect]
     Indication: OSTEOMYELITIS
     Dosage: 320 MG, 2X/DAY
     Route: 042
     Dates: start: 20090423
  2. VFEND [Suspect]
     Indication: OSTEOMYELITIS FUNGAL
  3. ZYPREXA [Concomitant]
     Dosage: UNK
  4. MONTELUKAST [Concomitant]
     Dosage: UNK
  5. PAXIL [Concomitant]
     Dosage: UNK
  6. VALSARTAN [Concomitant]
     Dosage: UNK
  7. ALBUTEROL [Concomitant]
     Dosage: UNK
  8. NASONEX [Concomitant]
     Dosage: UNK
  9. BACLOFEN [Concomitant]
     Dosage: UNK
  10. ADVAIR DISKUS 100/50 [Concomitant]
     Dosage: UNK
  11. FERROUS SULFATE [Concomitant]
     Dosage: UNK
  12. NEXIUM [Concomitant]
     Dosage: UNK
  13. MESTINON [Concomitant]
     Dosage: UNK
  14. IMIPRAMINE [Concomitant]
     Dosage: UNK
  15. CLARITIN [Concomitant]
     Dosage: UNK
  16. PROVIGIL [Concomitant]
     Dosage: UNK
  17. DITROPAN XL [Concomitant]
     Dosage: UNK
  18. VICODIN [Concomitant]
     Dosage: UNK
  19. ESTRACE [Concomitant]
     Dosage: UNK

REACTIONS (5)
  - ABNORMAL BEHAVIOUR [None]
  - AGITATION [None]
  - ANXIETY [None]
  - MEDICATION ERROR [None]
  - SUICIDAL IDEATION [None]
